FAERS Safety Report 7125141-X (Version None)
Quarter: 2010Q4

REPORT INFORMATION
  Report Type: 
  Country: None (occurrence: None)
  Receive Date: 20101129
  Receipt Date: 20101028
  Transmission Date: 20110411
  Serious: Yes (Hospitalization)
  Sender: FDA-Public Use
  Company Number: AU-AMGEN-KDC419189

PATIENT
  Sex: Male
  Weight: 60.1 kg

DRUGS (7)
  1. ROMIPLOSTIM [Suspect]
     Indication: IDIOPATHIC THROMBOCYTOPENIC PURPURA
     Dosage: 6 A?G/KG, QWK
     Route: 058
     Dates: start: 20090114
  2. ATENOLOL [Suspect]
     Dosage: UNK UNK, QD
     Dates: start: 20020601
  3. PROCTOSEDYL                        /00095901/ [Concomitant]
     Dosage: UNK UNK, PRN
  4. LOPERAMIDE [Concomitant]
     Dosage: UNK UNK, PRN
  5. AMPHOTERICIN B [Concomitant]
     Dosage: UNK UNK, PRN
  6. VOLTAREN [Concomitant]
     Dosage: UNK UNK, PRN
  7. PARACETAMOL [Concomitant]
     Dosage: UNK UNK, PRN

REACTIONS (1)
  - ISCHAEMIC STROKE [None]
